FAERS Safety Report 9176946 (Version 1)
Quarter: 2013Q1

REPORT INFORMATION
  Report Type: Spontaneous
  Country: GR (occurrence: GR)
  Receive Date: 20130321
  Receipt Date: 20130321
  Transmission Date: 20140127
  Serious: Yes (Death)
  Sender: FDA-Public Use
  Company Number: PHHY2013GR027277

PATIENT
  Age: 85 Year
  Sex: Female

DRUGS (3)
  1. ZOLEDRONATE [Suspect]
     Indication: OSTEITIS DEFORMANS
     Dosage: 5 MG
     Dates: start: 200610
  2. CALCIUM [Concomitant]
  3. CHOLECALCIFEROL [Concomitant]

REACTIONS (3)
  - Cardiac arrest [Fatal]
  - Bone pain [Recovering/Resolving]
  - Musculoskeletal pain [Recovering/Resolving]
